FAERS Safety Report 9345542 (Version 1)
Quarter: 2013Q2

REPORT INFORMATION
  Report Type: Spontaneous
  Country: GB (occurrence: GB)
  Receive Date: 20130613
  Receipt Date: 20130613
  Transmission Date: 20140414
  Serious: Yes (Death, Other)
  Sender: FDA-Public Use
  Company Number: GB-TEVA-411063ISR

PATIENT
  Age: 59 Year
  Sex: Female

DRUGS (1)
  1. PHENYTOIN [Suspect]
     Route: 065

REACTIONS (2)
  - Sepsis [Fatal]
  - Drug reaction with eosinophilia and systemic symptoms [Unknown]
